FAERS Safety Report 4627990-6 (Version None)
Quarter: 2005Q2

REPORT INFORMATION
  Report Type: 
  Country: None (occurrence: None)
  Receive Date: 20050401
  Receipt Date: 20050316
  Transmission Date: 20051028
  Serious: Yes (Death)
  Sender: FDA-Public Use
  Company Number: 2005S1001294

PATIENT
  Age: 79 Year
  Sex: Male

DRUGS (5)
  1. CLOZAPINE [Suspect]
     Dosage: 25 MG; HS; PO
     Route: 048
  2. FUROSEMIDE [Concomitant]
  3. GLIPIZIDE [Concomitant]
  4. VALSARTAN [Concomitant]
  5. CARBIDOPA AND LEVODOPA [Concomitant]

REACTIONS (1)
  - PARKINSON'S DISEASE [None]
